FAERS Safety Report 4586344-1 (Version None)
Quarter: 2005Q1

REPORT INFORMATION
  Report Type: 
  Country: None (occurrence: None)
  Receive Date: 20050125
  Receipt Date: 20040826
  Transmission Date: 20050727
  Serious: No
  Sender: FDA-Public Use
  Company Number: USA040876649

PATIENT
  Age: 67 Year
  Sex: Female

DRUGS (7)
  1. FORTEO [Suspect]
     Indication: OSTEOPOROSIS
     Dosage: 20 UG DAY
     Dates: start: 20040810
  2. VERAPAMIL [Concomitant]
  3. IMDUR [Concomitant]
  4. TRENTAL [Concomitant]
  5. ASPIRIN [Concomitant]
  6. CALCIUM GLUCONATE [Concomitant]
  7. MULTI-VITAMIN [Concomitant]

REACTIONS (3)
  - BACK PAIN [None]
  - RENAL CYST [None]
  - RENAL DISORDER [None]
